FAERS Safety Report 6617918-1 (Version None)
Quarter: 2010Q1

REPORT INFORMATION
  Report Type: 
  Country: None (occurrence: None)
  Receive Date: 20100223
  Receipt Date: 20091203
  Transmission Date: 20100710
  Serious: Yes (Hospitalization)
  Sender: FDA-Public Use
  Company Number: 8054592

PATIENT
  Sex: Female
  Weight: 55 kg

DRUGS (19)
  1. CERTOLIZUMAB PEGOL [Suspect]
     Indication: RHEUMATOID ARTHRITIS
     Dosage: (400 MG 1X/2 WEEKS SUBCUTANEOUS)
     Route: 058
     Dates: start: 20091012
  2. METHOTREXATE [Concomitant]
  3. PREDNISONE [Concomitant]
  4. NAPROSYN [Concomitant]
  5. PLAQUENIL [Concomitant]
  6. FOLIC ACID [Concomitant]
  7. DIFLUCAN [Concomitant]
  8. DARVOCET-N 100 [Concomitant]
  9. PROAIR HFA [Concomitant]
  10. ADVAIR DISKUS 100/50 [Concomitant]
  11. VITAMIN C [Concomitant]
  12. VITAMIN D [Concomitant]
  13. FLONASE [Concomitant]
  14. ALENDRONATE SODIUM [Concomitant]
  15. TRAVATAN [Concomitant]
  16. ATROVENT [Concomitant]
  17. ALBUTEROL [Concomitant]
  18. HEPARIN [Concomitant]
  19. INFLUENZA VACCINE [Concomitant]

REACTIONS (1)
  - PYELONEPHRITIS [None]
